FAERS Safety Report 11858433 (Version 1)
Quarter: 2015Q4

REPORT INFORMATION
  Report Type: Spontaneous
  Country: JP (occurrence: JP)
  Receive Date: 20151222
  Receipt Date: 20151222
  Transmission Date: 20160305
  Serious: Yes (Other)
  Sender: FDA-Public Use
  Company Number: JP-WATSON-2015-17040

PATIENT
  Age: 7 Year
  Sex: Female

DRUGS (1)
  1. CYCLOSPORINE (UNKNOWN) [Suspect]
     Active Substance: CYCLOSPORINE
     Indication: ALPORT^S SYNDROME
     Dosage: UNK
     Route: 065

REACTIONS (2)
  - Renal tubular disorder [Unknown]
  - Glomerulosclerosis [Unknown]
